FAERS Safety Report 12480151 (Version 2)
Quarter: 2016Q3

REPORT INFORMATION
  Report Type: Spontaneous
  Country: US (occurrence: US)
  Receive Date: 20160620
  Receipt Date: 20160712
  Transmission Date: 20161109
  Serious: Yes (Hospitalization)
  Sender: FDA-Public Use
  Company Number: US-AUROBINDO-AUR-APL-2016-08043

PATIENT
  Age: 58 Year
  Sex: Male

DRUGS (2)
  1. NAPROXEN. [Interacting]
     Active Substance: NAPROXEN
     Indication: BACK PAIN
     Dosage: UNK
     Route: 065
  2. PHENYTOIN. [Suspect]
     Active Substance: PHENYTOIN
     Indication: SEIZURE
     Dosage: 200 MG, TWO TIMES A DAY
     Route: 065

REACTIONS (6)
  - Toxicity to various agents [Recovering/Resolving]
  - Nystagmus [Recovering/Resolving]
  - Vision blurred [Recovering/Resolving]
  - Drug interaction [Recovering/Resolving]
  - Vertigo [Recovering/Resolving]
  - Dizziness [Recovering/Resolving]
